FAERS Safety Report 21835610 (Version 4)
Quarter: 2023Q2

REPORT INFORMATION
  Report Type: Report from Study
  Country: CA (occurrence: CA)
  Receive Date: 20230109
  Receipt Date: 20230608
  Transmission Date: 20230721
  Serious: Yes (Other)
  Sender: FDA-Public Use
  Company Number: CA-ABBVIE-4261343

PATIENT
  Age: 54 Year
  Sex: Male

DRUGS (4)
  1. VENCLEXTA [Suspect]
     Active Substance: VENETOCLAX
     Indication: Acute myeloid leukaemia
     Dosage: FORM STRENGTH 50 MILLIGRAM
     Route: 048
     Dates: start: 20221019
  2. VENCLEXTA [Suspect]
     Active Substance: VENETOCLAX
     Indication: Acute myeloid leukaemia
     Dosage: 2 TABLETS ONCE DAILY?FORM STRENGTH 10 MILLIGRAM
     Route: 048
  3. VENCLEXTA [Suspect]
     Active Substance: VENETOCLAX
     Indication: Acute myeloid leukaemia
     Route: 048
     Dates: end: 20230105
  4. BIOTIN [Concomitant]
     Active Substance: BIOTIN
     Indication: Product used for unknown indication

REACTIONS (15)
  - Neoplasm malignant [Not Recovered/Not Resolved]
  - Palliative care [Not Recovered/Not Resolved]
  - Drug ineffective [Unknown]
  - Haemoglobin decreased [Unknown]
  - Metabolic disorder [Unknown]
  - Polychromasia [Unknown]
  - Renal mass [Unknown]
  - Excessive granulation tissue [Unknown]
  - Pulmonary mass [Unknown]
  - Proctalgia [Unknown]
  - Acute myeloid leukaemia refractory [Unknown]
  - Neutrophil count decreased [Unknown]
  - Renal cyst [Unknown]
  - Atelectasis [Unknown]
  - Cholelithiasis [Unknown]

NARRATIVE: CASE EVENT DATE: 20230101
